FAERS Safety Report 6242552-5 (Version None)
Quarter: 2009Q2

REPORT INFORMATION
  Report Type: 
  Country: None (occurrence: None)
  Receive Date: 20090622
  Receipt Date: 20090622
  Transmission Date: 20091009
  Serious: Yes (Other)
  Sender: FDA-Public Use
  Company Number: None

PATIENT
  Age: 42 Year
  Sex: Female
  Weight: 52.1637 kg

DRUGS (2)
  1. ZICAM NASAL SPRAY [Suspect]
     Indication: NASOPHARYNGITIS
     Dosage: 1 SPRAY IN EACH NOSTRIL ONCE A DAY NASAL
     Route: 045
     Dates: start: 20090601, end: 20090605
  2. ZICAM NASAL SPRAY [Suspect]
     Indication: SINUS HEADACHE
     Dosage: 1 SPRAY IN EACH NOSTRIL ONCE A DAY NASAL
     Route: 045
     Dates: start: 20090601, end: 20090605

REACTIONS (3)
  - ANOSMIA [None]
  - RHINORRHOEA [None]
  - SINUS HEADACHE [None]
